FAERS Safety Report 7938555-2 (Version None)
Quarter: 2011Q4

REPORT INFORMATION
  Report Type: 
  Country: None (occurrence: None)
  Receive Date: 20111123
  Receipt Date: 20111118
  Transmission Date: 20120403
  Serious: Yes (Hospitalization)
  Sender: FDA-Public Use
  Company Number: JP-ABBOTT-11P-087-0847437-00

PATIENT
  Sex: Female
  Weight: 58 kg

DRUGS (2)
  1. CEFDINIR [Suspect]
     Indication: CYSTITIS
     Route: 048
     Dates: start: 20100126, end: 20100126
  2. CLARITHROMYCIN [Suspect]
     Indication: CYSTITIS
     Route: 048
     Dates: start: 20100127, end: 20100129

REACTIONS (1)
  - PSEUDOMEMBRANOUS COLITIS [None]
